FAERS Safety Report 7380589-3 (Version None)
Quarter: 2011Q1

REPORT INFORMATION
  Report Type: 
  Country: None (occurrence: None)
  Receive Date: 20110329
  Receipt Date: 20110317
  Transmission Date: 20110831
  Serious: Yes (Death)
  Sender: FDA-Public Use
  Company Number: DE-ACTELION-A-US2011-46588

PATIENT

DRUGS (9)
  1. ASPIRIN [Concomitant]
  2. SPIRIVA [Concomitant]
  3. METHIMAZOLE [Concomitant]
  4. TORASEMID [Concomitant]
  5. VENTAVIS [Suspect]
     Indication: PULMONARY ARTERIAL HYPERTENSION
     Dosage: 5 UG, 6 X DAY
     Route: 055
     Dates: start: 20070329
  6. TRACLEER [Concomitant]
     Indication: PULMONARY ARTERIAL HYPERTENSION
     Dosage: UNK
     Route: 048
     Dates: start: 20040916
  7. SILDENAFIL CITRATE [Concomitant]
  8. ALLOPURINOL [Concomitant]
  9. NEXIUM [Concomitant]

REACTIONS (1)
  - DEATH [None]
